FAERS Safety Report 6793234-2 (Version None)
Quarter: 2010Q2

REPORT INFORMATION
  Report Type: 
  Country: None (occurrence: None)
  Receive Date: 20100624
  Receipt Date: 20090917
  Transmission Date: 20101027
  Serious: Yes (Death)
  Sender: FDA-Public Use
  Company Number: US-MYLANLABS-2009S1015805

PATIENT
  Age: 53 Year
  Sex: Female
  Weight: 90.72 kg

DRUGS (4)
  1. CLOZAPINE [Suspect]
     Route: 048
     Dates: start: 20080117
  2. PAXIL [Concomitant]
  3. LORAZEPAM [Concomitant]
     Indication: ANXIETY
     Dosage: 1-3 TABS PRN
  4. DITROPAN [Concomitant]

REACTIONS (1)
  - DEATH [None]
